FAERS Safety Report 19585334 (Version 3)
Quarter: 2021Q3

REPORT INFORMATION
  Report Type: Spontaneous
  Country: DE (occurrence: DE)
  Receive Date: 20210721
  Receipt Date: 20210825
  Transmission Date: 20211014
  Serious: Yes (Hospitalization, Other)
  Sender: FDA-Public Use
  Company Number: DE-TEVA-2021-DE-1932850

PATIENT
  Age: 84 Year
  Sex: Male
  Weight: 91 kg

DRUGS (3)
  1. CLOPIDOGREL RATIOPHARM 75 MG FILMTABLETTEN [Suspect]
     Active Substance: CLOPIDOGREL BESILATE
     Indication: ANTICOAGULANT THERAPY
     Dosage: 75 MILLIGRAM DAILY; 1?0?0
     Route: 048
     Dates: start: 20210605
  2. ASPIRIN. [Concomitant]
     Active Substance: ASPIRIN
     Route: 065
  3. RAMIPRIL. [Concomitant]
     Active Substance: RAMIPRIL
     Route: 065

REACTIONS (7)
  - Drug intolerance [Unknown]
  - Skin haemorrhage [Recovered/Resolved]
  - Haemarthrosis [Recovered/Resolved]
  - Mucosal haemorrhage [Recovered/Resolved]
  - Cerebrovascular accident [Unknown]
  - Hypertension [Unknown]
  - Manufacturing production issue [Unknown]

NARRATIVE: CASE EVENT DATE: 202106
